FAERS Safety Report 7646483-5 (Version None)
Quarter: 2011Q3

REPORT INFORMATION
  Report Type: 
  Country: None (occurrence: None)
  Receive Date: 20110801
  Receipt Date: 20110722
  Transmission Date: 20111222
  Serious: Yes (Hospitalization, Other)
  Sender: FDA-Public Use
  Company Number: US-BAYER-201040985NA

PATIENT
  Age: 43 Year
  Sex: Female
  Weight: 90.703 kg

DRUGS (9)
  1. YASMIN [Suspect]
     Indication: MENORRHAGIA
  2. YASMIN [Suspect]
     Indication: UTERINE SPASM
  3. SUDAFED DECONGESTANT [Concomitant]
     Indication: ALLERGIC RESPIRATORY DISEASE
     Dosage: UNK UNK, BID
     Dates: start: 20060101
  4. YASMIN [Suspect]
     Indication: CONTRACEPTION
     Dosage: UNK
     Route: 048
     Dates: start: 20050901, end: 20060201
  5. LEVOXYL [Concomitant]
     Indication: THYROID FUNCTION TEST ABNORMAL
     Dosage: 125 MCG/24HR, QD
     Dates: start: 20060118
  6. PARAFON [Concomitant]
     Indication: MUSCLE TIGHTNESS
     Dosage: 500 MG, QID
     Dates: start: 20060101
  7. XALATAN [Concomitant]
     Indication: GLAUCOMA
     Dosage: UNK
     Dates: start: 20060213
  8. IBUPROFEN (ADVIL) [Concomitant]
     Indication: HEADACHE
     Dosage: UNK
     Dates: start: 20060101
  9. PRILOSEC [Concomitant]
     Indication: REFLUX GASTRITIS
     Dosage: 40 MG, QD
     Dates: start: 20060101

REACTIONS (2)
  - PULMONARY EMBOLISM [None]
  - DEEP VEIN THROMBOSIS [None]
